FAERS Safety Report 11898706 (Version 1)
Quarter: 2016Q1

REPORT INFORMATION
  Report Type: Spontaneous
  Country: GB (occurrence: GB)
  Receive Date: 20160108
  Receipt Date: 20160108
  Transmission Date: 20160526
  Serious: Yes (Disabling)
  Sender: FDA-Public Use
  Company Number: GB-GLAXOSMITHKLINE-GB2016001436

PATIENT
  Age: 65 Year
  Sex: Female
  Weight: 63.5 kg

DRUGS (4)
  1. ELIQUIS [Suspect]
     Active Substance: APIXABAN
     Indication: ATRIAL FIBRILLATION
     Dosage: 5MG X 2
     Route: 048
     Dates: start: 201504
  2. ZANTAC [Suspect]
     Active Substance: RANITIDINE HYDROCHLORIDE
     Indication: PRODUCT USED FOR UNKNOWN INDICATION
     Dosage: NIGHT TIME
     Route: 048
     Dates: start: 201507
  3. COCODAMOL [Concomitant]
     Active Substance: ACETAMINOPHEN\CODEINE PHOSPHATE
     Dosage: 8/500X2 WHEN REQUIRED USUALLY AT BED TIME
  4. LOSEC [Concomitant]
     Active Substance: OMEPRAZOLE
     Dosage: 10 MG, UNK

REACTIONS (6)
  - Night sweats [Not Recovered/Not Resolved]
  - Head discomfort [Not Recovered/Not Resolved]
  - Drug hypersensitivity [Unknown]
  - Arthralgia [Not Recovered/Not Resolved]
  - Insomnia [Not Recovered/Not Resolved]
  - Tinnitus [Not Recovered/Not Resolved]

NARRATIVE: CASE EVENT DATE: 201504
